FAERS Safety Report 9762821 (Version 3)
Quarter: 2014Q1

REPORT INFORMATION
  Report Type: Spontaneous
  Country: US (occurrence: US)
  Receive Date: 20131216
  Receipt Date: 20140319
  Transmission Date: 20141002
  Serious: Yes (Hospitalization)
  Sender: FDA-Public Use
  Company Number: US-B.I. PHARMACEUTICALS,INC./RIDGEFIELD-2013-BI-18719BP

PATIENT
  Sex: Male
  Weight: 86.4 kg

DRUGS (24)
  1. PRADAXA [Suspect]
     Indication: ATRIAL FIBRILLATION
     Dosage: 300 MG
     Route: 048
     Dates: start: 20110217, end: 20110616
  2. PRADAXA [Suspect]
     Indication: ANTICOAGULANT THERAPY
  3. ATACAND HCT [Concomitant]
     Dosage: 32 MG
     Route: 048
  4. COREG CR [Concomitant]
     Dosage: 20 MG
     Route: 048
  5. DIGOXIN [Concomitant]
     Dosage: 0.125 MG
     Route: 048
  6. FLEXERIL [Concomitant]
     Dosage: 10 MG
     Route: 048
  7. GLUCOPHAGE [Concomitant]
     Dosage: 1000 MG
     Route: 048
  8. HYOSCYAMINE [Concomitant]
     Dosage: 0.75 MG
     Route: 048
  9. JANUVIA [Concomitant]
     Dosage: 100 MG
     Route: 048
  10. LEVEMIR [Concomitant]
     Dosage: 20 U
     Route: 058
  11. MIRALAX [Concomitant]
     Dosage: 17 G
     Route: 048
  12. NEXIUM [Concomitant]
     Dosage: 40 MG
     Route: 048
  13. NUVIGIL [Concomitant]
     Dosage: 250 MG
     Route: 048
  14. POTASSIUM [Concomitant]
     Dosage: 30 MG
     Route: 048
  15. REGLAN [Concomitant]
     Route: 048
  16. SYNTHROID [Concomitant]
     Dosage: 0.05 MG
     Route: 048
  17. TRIGLIDE [Concomitant]
     Dosage: 150 MG
     Route: 048
  18. ULTRACET [Concomitant]
     Dosage: 150 MG
     Route: 048
  19. UROXATRAL [Concomitant]
     Dosage: 10 MG
     Route: 048
  20. ZOCOR [Concomitant]
     Dosage: 20 MG
     Route: 048
  21. BUMEX [Concomitant]
     Dosage: 2 MG
     Route: 048
  22. FERROUS SULFATE [Concomitant]
     Dosage: 325 MG
     Route: 048
  23. METAXALONE [Concomitant]
     Dosage: 5 MG
     Route: 048
  24. FISH OIL [Concomitant]
     Route: 065

REACTIONS (2)
  - Pulmonary haemorrhage [Recovered/Resolved]
  - Anaemia [Unknown]
